FAERS Safety Report 6138141-3 (Version None)
Quarter: 2009Q1

REPORT INFORMATION
  Report Type: 
  Country: None (occurrence: None)
  Receive Date: 20090331
  Receipt Date: 20090328
  Transmission Date: 20090719
  Serious: Yes (Hospitalization)
  Sender: FDA-Public Use
  Company Number: US-ASTRAZENECA-2009UW07923

PATIENT
  Age: 74 Year
  Sex: Female

DRUGS (1)
  1. PULMICORT RESPULES [Suspect]
     Route: 055

REACTIONS (1)
  - FALL [None]
